FAERS Safety Report 6074611-4 (Version None)
Quarter: 2009Q1

REPORT INFORMATION
  Report Type: 
  Country: None (occurrence: None)
  Receive Date: 20090211
  Receipt Date: 20090203
  Transmission Date: 20090719
  Serious: Yes (Other)
  Sender: FDA-Public Use
  Company Number: DE-ALLERGAN-0813362US

PATIENT
  Age: 43 Year
  Sex: Male

DRUGS (2)
  1. BOTULINUM TOXIN TYPE A [Suspect]
     Indication: OROMANDIBULAR DYSTONIA
  2. FLUORESCEIN [Suspect]
     Indication: DIAGNOSTIC PROCEDURE

REACTIONS (3)
  - CENTRAL NERVOUS SYSTEM LESION [None]
  - CENTRAL NERVOUS SYSTEM NECROSIS [None]
  - HYPOXIA [None]
